FAERS Safety Report 7807961-9 (Version None)
Quarter: 2011Q4

REPORT INFORMATION
  Report Type: 
  Country: None (occurrence: None)
  Receive Date: 20111011
  Receipt Date: 20111011
  Transmission Date: 20120403
  Serious: Yes (Other)
  Sender: FDA-Public Use
  Company Number: None

PATIENT
  Age: 9 Year
  Sex: Male
  Weight: 39.008 kg

DRUGS (1)
  1. SINGULAIR [Suspect]
     Indication: ASTHMA
     Dosage: 1 TABLET
     Route: 048
     Dates: start: 20100116, end: 20111007

REACTIONS (3)
  - SUICIDAL IDEATION [None]
  - CRYING [None]
  - DEPRESSION [None]
